APPROVED DRUG PRODUCT: ISOSORBIDE DINITRATE
Active Ingredient: ISOSORBIDE DINITRATE
Strength: 20MG
Dosage Form/Route: TABLET;ORAL
Application: A089192 | Product #001
Applicant: SUPERPHARM CORP
Approved: Feb 17, 1987 | RLD: No | RS: No | Type: DISCN